FAERS Safety Report 26200715 (Version 1)
Quarter: 2025Q4

REPORT INFORMATION
  Report Type: Spontaneous
  Country: EU (occurrence: EU)
  Receive Date: 20251226
  Receipt Date: 20251226
  Transmission Date: 20260118
  Serious: Yes (Other)
  Sender: JOHNSON AND JOHNSON
  Company Number: EU-GT-20252948

PATIENT
  Age: 39 Year
  Sex: Female

DRUGS (3)
  1. TOPIRAMATE [Interacting]
     Active Substance: TOPIRAMATE
     Indication: Migraine prophylaxis
  2. DESOGESTREL [Interacting]
     Active Substance: DESOGESTREL
     Indication: Contraception
  3. ETHINYL ESTRADIOL\GESTODENE [Interacting]
     Active Substance: ETHINYL ESTRADIOL\GESTODENE
     Indication: Contraception

REACTIONS (6)
  - Ectopic pregnancy [Unknown]
  - Pregnancy on oral contraceptive [Unknown]
  - Drug interaction [Unknown]
  - Intermenstrual bleeding [Unknown]
  - Intentional product misuse [Unknown]
  - Drug ineffective [Unknown]
